FAERS Safety Report 6323348-2 (Version None)
Quarter: 2009Q3

REPORT INFORMATION
  Report Type: 
  Country: None (occurrence: None)
  Receive Date: 20090824
  Receipt Date: 20090407
  Transmission Date: 20100115
  Serious: No
  Sender: FDA-Public Use
  Company Number: US-ABBOTT-09P-163-0567126-00

PATIENT
  Sex: Male

DRUGS (4)
  1. NIASPAN [Suspect]
     Indication: BLOOD CHOLESTEROL INCREASED
     Dates: start: 20090401
  2. ASPIRIN [Concomitant]
     Indication: DRUG USE FOR UNKNOWN INDICATION
  3. UNKNOWN B/P MED [Concomitant]
     Indication: BLOOD PRESSURE
  4. UNKNOWN BLOOD SUGAR MED [Concomitant]
     Indication: BLOOD GLUCOSE

REACTIONS (2)
  - BLOOD GLUCOSE INCREASED [None]
  - BURNING SENSATION [None]
